FAERS Safety Report 14359763 (Version 1)
Quarter: 2018Q1

REPORT INFORMATION
  Report Type: Spontaneous
  Country: US (occurrence: US)
  Receive Date: 20180105
  Receipt Date: 20180105
  Transmission Date: 20180509
  Serious: No
  Sender: FDA-Public Use
  Company Number: -SAAVPROD-BI2017BI028530

PATIENT
  Sex: Female

DRUGS (4)
  1. RANITIDINE HYDROCHLORIDE. [Suspect]
     Active Substance: RANITIDINE HYDROCHLORIDE
     Indication: GASTROOESOPHAGEAL REFLUX DISEASE
     Dosage: 1-2 TABLEST QD (12 HOURS APART);  FORM STRENGTH: 150 MG; FORMULATION: TABLET? ADMINISTRATION CORRECT
     Route: 048
     Dates: start: 2011
  2. RANITIDINE HYDROCHLORIDE. [Suspect]
     Active Substance: RANITIDINE HYDROCHLORIDE
     Indication: GASTROOESOPHAGEAL REFLUX DISEASE
  3. RANITIDINE HYDROCHLORIDE. [Suspect]
     Active Substance: RANITIDINE HYDROCHLORIDE
     Indication: HIATUS HERNIA
     Dosage: 1-2 TABLEST QD (12 HOURS APART);  FORM STRENGTH: 150 MG; FORMULATION: TABLET? ADMINISTRATION CORRECT
     Route: 048
     Dates: start: 2011
  4. RANITIDINE HYDROCHLORIDE. [Suspect]
     Active Substance: RANITIDINE HYDROCHLORIDE
     Indication: HIATUS HERNIA

REACTIONS (4)
  - Gastritis [Unknown]
  - Incorrect drug administration duration [Unknown]
  - Off label use [Unknown]
  - Stress [Unknown]
